FAERS Safety Report 8359205-X (Version None)
Quarter: 2012Q2

REPORT INFORMATION
  Report Type: 
  Country: None (occurrence: None)
  Receive Date: 20120515
  Receipt Date: 20120507
  Transmission Date: 20120825
  Serious: Yes (Other)
  Sender: FDA-Public Use
  Company Number: CA-BAYER-2012-044249

PATIENT
  Sex: Female

DRUGS (1)
  1. MIRENA [Suspect]
     Dosage: UNK

REACTIONS (4)
  - COITAL BLEEDING [None]
  - DEVICE DISLOCATION [None]
  - VAGINAL HAEMORRHAGE [None]
  - DEVICE DAMAGE [None]
